FAERS Safety Report 8912712 (Version 2)
Quarter: 2013Q1

REPORT INFORMATION
  Report Type: Spontaneous
  Country: FR (occurrence: FR)
  Receive Date: 20121115
  Receipt Date: 20130211
  Transmission Date: 20140127
  Serious: Yes (Hospitalization)
  Sender: FDA-Public Use
  Company Number: FR-ASTRAZENECA-2012SE85465

PATIENT
  Age: 21860 Day
  Sex: Male
  Weight: 85 kg

DRUGS (3)
  1. INEXIUM [Suspect]
     Route: 042
     Dates: start: 201210
  2. BRILIQUE [Suspect]
     Indication: ANGIOPLASTY
     Route: 048
     Dates: start: 20121023, end: 20121031
  3. KARDEGIC [Suspect]
     Route: 048

REACTIONS (1)
  - Thrombocytopenia [Recovered/Resolved]
